FAERS Safety Report 23648902 (Version 1)
Quarter: 2024Q1

REPORT INFORMATION
  Report Type: Spontaneous
  Country: AU (occurrence: AU)
  Receive Date: 20240319
  Receipt Date: 20240319
  Transmission Date: 20240410
  Serious: Yes (Other)
  Sender: FDA-Public Use
  Company Number: AU-OTSUKA-2024_006733

PATIENT
  Age: 56 Year
  Sex: Male

DRUGS (1)
  1. INQOVI [Suspect]
     Active Substance: CEDAZURIDINE\DECITABINE
     Indication: Acute myeloid leukaemia
     Dosage: UNK (3 OR 4 CYCLES)
     Route: 065

REACTIONS (4)
  - Blood product transfusion dependent [Unknown]
  - Myelosuppression [Unknown]
  - Febrile neutropenia [Unknown]
  - Product use in unapproved indication [Unknown]
